FAERS Safety Report 23495099 (Version 1)
Quarter: 2024Q1

REPORT INFORMATION
  Report Type: Spontaneous
  Country: US (occurrence: None)
  Receive Date: 20240206
  Receipt Date: 20240206
  Transmission Date: 20240409
  Serious: Yes (Other)
  Sender: FDA-Public Use
  Company Number: None

PATIENT
  Age: 69 Year
  Sex: Female

DRUGS (3)
  1. XIIDRA [Suspect]
     Active Substance: LIFITEGRAST
     Indication: Dry eye
     Dosage: OTHER QUANTITY : 60 DROP(S);?FREQUENCY : EVERY 12 HOURS;?
     Route: 047
     Dates: start: 20240130, end: 20240205
  2. CALCIUM [Concomitant]
     Active Substance: CALCIUM
  3. VITAMIN D NOS [Concomitant]
     Active Substance: VITAMIN D NOS

REACTIONS (4)
  - Rash [None]
  - Nasal congestion [None]
  - Swollen tongue [None]
  - Swelling of eyelid [None]

NARRATIVE: CASE EVENT DATE: 20240203
